FAERS Safety Report 13355159 (Version 1)
Quarter: 2017Q1

REPORT INFORMATION
  Report Type: Spontaneous
  Country: US (occurrence: US)
  Receive Date: 20170321
  Receipt Date: 20170321
  Transmission Date: 20170429
  Serious: No
  Sender: FDA-Public Use
  Company Number: US-BAUSCH-BL-2016-032148

PATIENT
  Age: 7 Decade
  Sex: Female
  Weight: 70.37 kg

DRUGS (3)
  1. TRETINOIN CREAM 0.05% [Suspect]
     Active Substance: TRETINOIN
     Indication: SKIN DISCOLOURATION
     Dosage: ONCE A WEEK ON FACE
     Route: 061
  2. TRETINOIN CREAM 0.05% [Suspect]
     Active Substance: TRETINOIN
     Indication: THERAPEUTIC SKIN CARE TOPICAL
  3. ESTRACE [Concomitant]
     Active Substance: ESTRADIOL
     Indication: SKIN DISCOLOURATION
     Dosage: ONE APPLICATORFUL INTRAVAGINALLY
     Route: 067
     Dates: end: 20161210

REACTIONS (7)
  - Fatigue [Recovered/Resolved]
  - Vulvovaginal erythema [Recovering/Resolving]
  - Wrong technique in product usage process [Unknown]
  - Anxiety [Not Recovered/Not Resolved]
  - Vulvovaginal swelling [Recovering/Resolving]
  - Poor quality sleep [Recovered/Resolved]
  - Wrong drug administered [Not Recovered/Not Resolved]

NARRATIVE: CASE EVENT DATE: 20161220
